FAERS Safety Report 4348467-1 (Version None)
Quarter: 2004Q2

REPORT INFORMATION
  Report Type: 
  Country: None (occurrence: None)
  Receive Date: 20040423
  Receipt Date: 20040413
  Transmission Date: 20050107
  Serious: Yes (Death)
  Sender: FDA-Public Use
  Company Number: 163-20785-03100683

PATIENT
  Age: 75 Year
  Sex: Male

DRUGS (5)
  1. THALOMID [Suspect]
     Indication: MULTIPLE MYELOMA
     Dosage: 100 MG, DAILY, ORAL
     Route: 048
     Dates: start: 20030807
  2. DEXAMETHASONE [Concomitant]
  3. ASPIRIN [Concomitant]
  4. IRBESARTAN [Concomitant]
  5. DILTIAZEM [Concomitant]

REACTIONS (4)
  - AORTIC ANEURYSM [None]
  - BLOOD IMMUNOGLOBULIN G DECREASED [None]
  - CONDITION AGGRAVATED [None]
  - CONSTIPATION [None]
